FAERS Safety Report 23590446 (Version 2)
Quarter: 2024Q3

REPORT INFORMATION
  Report Type: Spontaneous
  Country: TN (occurrence: TN)
  Receive Date: 20240304
  Receipt Date: 20240831
  Transmission Date: 20241016
  Serious: Yes (Hospitalization, Disabling)
  Sender: MACLEODS
  Company Number: None

PATIENT

DRUGS (2)
  1. METFORMIN [Suspect]
     Active Substance: METFORMIN HYDROCHLORIDE
     Indication: Type 2 diabetes mellitus
     Dosage: 1700 MILLIGRAM, QD
     Route: 065
  2. INSULIN NOS [Concomitant]
     Active Substance: INSULIN NOS
     Indication: Type 2 diabetes mellitus
     Dosage: UNK
     Route: 065

REACTIONS (6)
  - Frontotemporal dementia [Recovering/Resolving]
  - Epilepsy [Recovered/Resolved]
  - Loss of consciousness [Recovering/Resolving]
  - Urinary incontinence [Unknown]
  - Microcytic anaemia [Unknown]
  - Vitamin B12 deficiency [Recovering/Resolving]
